FAERS Safety Report 8440503-6 (Version None)
Quarter: 2012Q2

REPORT INFORMATION
  Report Type: 
  Country: None (occurrence: None)
  Receive Date: 20120615
  Receipt Date: 20120601
  Transmission Date: 20120825
  Serious: Yes (Hospitalization)
  Sender: FDA-Public Use
  Company Number: FR-VERTEX PHARMACEUTICALS INC.-000000000000000884

PATIENT
  Sex: Male
  Weight: 88 kg

DRUGS (10)
  1. ASPIRIN [Concomitant]
     Indication: HYPERTENSION
     Dates: start: 20070101
  2. COPEGUS [Concomitant]
     Dates: start: 20120402, end: 20120430
  3. LERCANIDIPINE [Concomitant]
     Indication: HYPERTENSION
     Dates: start: 20070101
  4. ENALAPRIL [Concomitant]
     Indication: HYPERTENSION
     Dates: start: 20070101
  5. PEGASYS [Concomitant]
     Indication: HEPATITIS C
     Dates: start: 20120402
  6. METFORMIN HCL [Concomitant]
     Indication: DIABETES MELLITUS
     Dates: start: 20070101
  7. INCIVO [Suspect]
     Indication: HEPATITIS C
     Dosage: DOSAGE FORM: TABLET
     Route: 048
     Dates: start: 20120402
  8. JANUVIA [Concomitant]
     Indication: DIABETES MELLITUS
     Dates: start: 20070101
  9. COPEGUS [Concomitant]
     Indication: HEPATITIS C
     Dates: start: 20120501
  10. ATENOLOL [Concomitant]
     Indication: HYPERTENSION
     Dates: start: 20070101

REACTIONS (2)
  - CARDIAC FAILURE [None]
  - OEDEMA [None]
